FAERS Safety Report 5008763-1 (Version None)
Quarter: 2006Q2

REPORT INFORMATION
  Report Type: 
  Country: None (occurrence: None)
  Receive Date: 20060404
  Receipt Date: 20060201
  Transmission Date: 20061013
  Serious: No
  Sender: FDA-Public Use
  Company Number: US200602000491

PATIENT
  Sex: Female

DRUGS (7)
  1. CYMBALTA [Suspect]
     Indication: NEURALGIA
     Dosage: 60 MG, DAILY (1/D)
     Dates: start: 20050315
  2. PREVACID [Concomitant]
  3. METFORMIN [Concomitant]
  4. HYDROCHLOROTHIAZIDE [Concomitant]
  5. VICODIN [Concomitant]
  6. MIRALAX [Concomitant]
  7. PREMARIN [Concomitant]

REACTIONS (3)
  - ANAEMIA [None]
  - INSOMNIA [None]
  - THINKING ABNORMAL [None]
